FAERS Safety Report 6677897-8 (Version None)
Quarter: 2010Q2

REPORT INFORMATION
  Report Type: 
  Country: None (occurrence: None)
  Receive Date: 20100412
  Receipt Date: 20100329
  Transmission Date: 20101027
  Serious: Yes (Hospitalization)
  Sender: FDA-Public Use
  Company Number: CA-ALEXION-A201000093

PATIENT
  Sex: Male

DRUGS (12)
  1. SOLIRIS [Suspect]
     Indication: PAROXYSMAL NOCTURNAL HAEMOGLOBINURIA
     Dosage: 600 MG, QW
     Route: 042
     Dates: start: 20091106, end: 20091129
  2. SOLIRIS [Suspect]
     Dosage: 900 MG, Q2W
     Route: 042
     Dates: start: 20091204
  3. FOLIC ACID [Concomitant]
     Dosage: UNK
     Route: 048
  4. PREDNISOLONE [Concomitant]
     Dosage: UNK
     Route: 048
  5. ZANTAC                             /00550802/ [Concomitant]
     Dosage: UNK
     Route: 048
  6. ADALAT [Concomitant]
     Dosage: UNK
     Route: 048
  7. LASIX [Concomitant]
     Dosage: UNK
     Route: 048
  8. FOSAMAX [Concomitant]
     Dosage: UNK
     Route: 048
  9. WARFARIN [Concomitant]
     Dosage: UNK
     Route: 048
  10. IRON [Concomitant]
     Dosage: UNK
     Route: 048
  11. CALCIUM [Concomitant]
     Dosage: UNK
     Route: 048
  12. VITAMIN A [Concomitant]
     Dosage: UNK
     Route: 048

REACTIONS (1)
  - RETINAL TEAR [None]
